FAERS Safety Report 5228402-4 (Version None)
Quarter: 2007Q1

REPORT INFORMATION
  Report Type: 
  Country: None (occurrence: None)
  Receive Date: 20070131
  Receipt Date: 20070131
  Transmission Date: 20070707
  Serious: No
  Sender: FDA-Public Use
  Company Number: None

PATIENT
  Age: 70 Year
  Sex: Male
  Weight: 75.2971 kg

DRUGS (11)
  1. DEMEROL [Suspect]
     Indication: PROCEDURAL PAIN
     Dosage: 25 MG Q5 PRN PAIN IM
     Route: 030
     Dates: start: 20061017
  2. HYDROCODONE/ACETAMINOPHEN [Suspect]
     Indication: PROCEDURAL PAIN
     Dates: start: 20061018, end: 20061019
  3. CARDIZEM [Concomitant]
  4. PROSCAR [Concomitant]
  5. ZETIA [Concomitant]
  6. ZOCOR [Concomitant]
  7. DECADRON [Concomitant]
  8. TORADOL [Concomitant]
  9. RESTORIL [Concomitant]
  10. ANCEF [Concomitant]
  11. KEFLEX [Concomitant]

REACTIONS (1)
  - RASH ERYTHEMATOUS [None]
